FAERS Safety Report 10872570 (Version 1)
Quarter: 2015Q1

REPORT INFORMATION
  Report Type: Spontaneous
  Country: ES (occurrence: ES)
  Receive Date: 20150227
  Receipt Date: 20150227
  Transmission Date: 20150721
  Serious: Yes (Other)
  Sender: FDA-Public Use
  Company Number: ES-009507513-1502ESP000783

PATIENT
  Age: 26 Year
  Sex: Female

DRUGS (1)
  1. NUVARING [Suspect]
     Active Substance: ETHINYL ESTRADIOL\ETONOGESTREL
     Dosage: STRENGTH:ETONOGESTREL 0.120MG/ETHYNILESTRADIOL 0.015MG
     Route: 067
     Dates: start: 2012

REACTIONS (3)
  - Unintended pregnancy [Recovered/Resolved]
  - Abortion induced [Unknown]
  - Incorrect drug administration duration [Unknown]

NARRATIVE: CASE EVENT DATE: 20150211
